FAERS Safety Report 6263854-2 (Version None)
Quarter: 2009Q3

REPORT INFORMATION
  Report Type: 
  Country: None (occurrence: None)
  Receive Date: 20090701
  Receipt Date: 20090311
  Transmission Date: 20100115
  Serious: Yes (Hospitalization)
  Sender: FDA-Public Use
  Company Number: 187700USA

PATIENT
  Sex: Female

DRUGS (1)
  1. RISPERIDONE [Suspect]
     Dosage: (1 MG), ORAL
     Route: 048

REACTIONS (1)
  - PSYCHOTIC DISORDER [None]
